FAERS Safety Report 8286589-3 (Version None)
Quarter: 2012Q2

REPORT INFORMATION
  Report Type: 
  Country: None (occurrence: None)
  Receive Date: 20120416
  Receipt Date: 20120405
  Transmission Date: 20120825
  Serious: Yes (Other)
  Sender: FDA-Public Use
  Company Number: US-BAYER-2012-006908

PATIENT
  Age: 28 Year
  Sex: Female
  Weight: 70.748 kg

DRUGS (8)
  1. YAZ [Suspect]
     Indication: PREMENSTRUAL SYNDROME
  2. DARVOCET [Concomitant]
     Dosage: UNK
     Dates: start: 20100331
  3. CIPROFLOXACIN [Concomitant]
     Dosage: 500 MG, UNK
     Dates: start: 20100106, end: 20100113
  4. ACETAMINOPHEN [Concomitant]
     Dosage: UNK
     Dates: start: 20100304
  5. PHENAZOPYRIDINE HCL TAB [Concomitant]
     Dosage: 100 MG, UNK
     Dates: start: 20100106
  6. NORGESTIMATE/ETHINYL ESTRADIOL [Concomitant]
  7. YAZ [Suspect]
     Indication: CONTRACEPTION
     Dosage: UNK
     Dates: start: 20080201, end: 20100201
  8. ORTHO TRI-CYCLEN [Concomitant]
     Dosage: UNK
     Dates: start: 20100201, end: 20100901

REACTIONS (3)
  - BILIARY COLIC [None]
  - GALLBLADDER DISORDER [None]
  - INJURY [None]
